FAERS Safety Report 18593135 (Version 2)
Quarter: 2020Q4

REPORT INFORMATION
  Report Type: Not Available
  Country: US (occurrence: US)
  Receive Date: 20201208
  Receipt Date: 20201224
  Transmission Date: 20210114
  Serious: Yes (Death, Hospitalization)
  Sender: FDA-Public Use
  Company Number: US-NEUROCRINE BIOSCIENCES INC.-2020NBI04383

PATIENT
  Age: 68 Year
  Sex: Male

DRUGS (1)
  1. INGREZZA [Suspect]
     Active Substance: VALBENAZINE
     Indication: TARDIVE DYSKINESIA
     Route: 048
     Dates: start: 20201009

REACTIONS (6)
  - Femur fracture [Unknown]
  - Therapeutic product effect decreased [Unknown]
  - Off label use [Unknown]
  - Death [Fatal]
  - Fall [Recovered/Resolved]
  - Enteral nutrition [Not Recovered/Not Resolved]

NARRATIVE: CASE EVENT DATE: 2020
